FAERS Safety Report 16316909 (Version 1)
Quarter: 2019Q2

REPORT INFORMATION
  Report Type: Spontaneous
  Country: NL (occurrence: NL)
  Receive Date: 20190515
  Receipt Date: 20190515
  Transmission Date: 20190711
  Serious: Yes (Hospitalization, Other)
  Sender: FDA-Public Use
  Company Number: NL-SA-2019SA129070

PATIENT
  Age: 65 Year
  Sex: Female

DRUGS (10)
  1. CLOBETASOL [Concomitant]
     Active Substance: CLOBETASOL
     Dosage: IF NECESSARY 1X PER DAY 1 DOSE
     Route: 003
  2. AMLODIPINE [Concomitant]
     Active Substance: AMLODIPINE BESYLATE
     Dosage: 10 MG, QD
     Route: 048
  3. PREDNISOLON AL [Concomitant]
     Active Substance: PREDNISOLONE
     Dosage: 10 MG, QD
     Route: 048
  4. DESOXIMETASON [Concomitant]
     Active Substance: DESOXIMETASONE
     Dosage: 1 DF, Q6H
     Route: 003
  5. DEXAMETHASON [DEXAMETHASONE] [Concomitant]
     Active Substance: DEXAMETHASONE
     Dosage: 1 DF, QID
     Route: 060
  6. HYDROCORTISON ACETATE [Concomitant]
     Dosage: 1 DF, QD
     Route: 003
  7. LEFLUNOMIDE. [Suspect]
     Active Substance: LEFLUNOMIDE
     Indication: RHEUMATOID ARTHRITIS
     Dosage: 1DD 20MG
     Route: 048
     Dates: start: 201806, end: 201904
  8. ALENDRONINEZUUR [Concomitant]
     Active Substance: ALENDRONIC ACID
     Dosage: 70 MG, QD
     Route: 048
  9. CALCIUMCARBIMIDUM [Concomitant]
     Dosage: 1 DF, QD
     Route: 048
  10. NADROPARIN [Concomitant]
     Active Substance: NADROPARIN
     Dosage: 1 X PER DAG 1 STUK
     Route: 058

REACTIONS (4)
  - Drug reaction with eosinophilia and systemic symptoms [Recovering/Resolving]
  - Generalised erythema [Recovering/Resolving]
  - Mucosal inflammation [Recovering/Resolving]
  - Eosinophilia [Recovering/Resolving]

NARRATIVE: CASE EVENT DATE: 201903
